FAERS Safety Report 15602005 (Version 1)
Quarter: 2018Q4

REPORT INFORMATION
  Report Type: Spontaneous
  Country: FR (occurrence: FR)
  Receive Date: 20181109
  Receipt Date: 20181109
  Transmission Date: 20190205
  Serious: Yes (Hospitalization, Other)
  Sender: FDA-Public Use
  Company Number: FR-MYLANLABS-2018M1084237

PATIENT
  Age: 4 Year
  Sex: Female

DRUGS (5)
  1. CEFOTAXIME [Suspect]
     Active Substance: CEFOTAXIME SODIUM
     Indication: MASTOIDITIS
     Dosage: 300 MG/KG, QD
     Route: 042
     Dates: start: 20180427, end: 20180511
  2. COUMADINE [Concomitant]
     Active Substance: WARFARIN SODIUM
     Indication: PRODUCT USED FOR UNKNOWN INDICATION
     Dosage: 1 DF, QD
     Route: 048
     Dates: start: 20180501
  3. PARACETAMOL [Concomitant]
     Active Substance: ACETAMINOPHEN
     Indication: PRODUCT USED FOR UNKNOWN INDICATION
     Dosage: 60 MG/KG, QD
     Route: 042
     Dates: start: 20180427
  4. METRONIDAZOLE. [Concomitant]
     Active Substance: METRONIDAZOLE
     Indication: MASTOIDITIS
     Dosage: 30 MG/KG, QD
     Route: 042
     Dates: start: 20180427
  5. VANCOMYCIN [Suspect]
     Active Substance: VANCOMYCIN
     Indication: MASTOIDITIS
     Dosage: 60 MG/KG, UNK
     Route: 042

REACTIONS (2)
  - Pyrexia [Recovered/Resolved]
  - Hypersensitivity [Recovered/Resolved]

NARRATIVE: CASE EVENT DATE: 20180511
